FAERS Safety Report 11154948 (Version 1)
Quarter: 2015Q2

REPORT INFORMATION
  Report Type: Spontaneous
  Country: IT (occurrence: IT)
  Receive Date: 20150602
  Receipt Date: 20150602
  Transmission Date: 20150821
  Serious: Yes (Death)
  Sender: FDA-Public Use
  Company Number: IT-ALKEM-001030

PATIENT
  Age: 35 Year
  Sex: Female

DRUGS (8)
  1. LAMOTRIGINE. [Suspect]
     Active Substance: LAMOTRIGINE
  2. TRAMADOL [Suspect]
     Active Substance: TRAMADOL
  3. VENLAFAXINE [Suspect]
     Active Substance: VENLAFAXINE HYDROCHLORIDE
  4. DIPHENHYDRAMINE [Suspect]
     Active Substance: DIPHENHYDRAMINE
  5. PREGABALIN. [Suspect]
     Active Substance: PREGABALIN
  6. MODAFINIL. [Suspect]
     Active Substance: MODAFINIL
  7. ZOPICLONE [Suspect]
     Active Substance: ZOPICLONE
  8. ZOLPIDEM [Suspect]
     Active Substance: ZOLPIDEM\ZOLPIDEM TARTRATE

REACTIONS (3)
  - Overdose [Fatal]
  - Completed suicide [Fatal]
  - Hypersensitivity vasculitis [Fatal]
